FAERS Safety Report 5406484-4 (Version None)
Quarter: 2007Q3

REPORT INFORMATION
  Report Type: 
  Country: None (occurrence: None)
  Receive Date: 20070806
  Receipt Date: 20070724
  Transmission Date: 20080115
  Serious: Yes (Hospitalization, Other)
  Sender: FDA-Public Use
  Company Number: US-ELI_LILLY_AND_COMPANY-US200706006252

PATIENT
  Age: 76 Year
  Sex: Female
  Weight: 102.49 kg

DRUGS (4)
  1. EVISTA [Suspect]
     Indication: OSTEOPOROSIS
     Dosage: 60 MG, UNK
     Route: 048
     Dates: end: 20070501
  2. NEXIUM [Concomitant]
  3. HYDROCHLOROTHIAZIDE [Concomitant]
  4. TUMS [Concomitant]

REACTIONS (5)
  - BREAST CANCER [None]
  - COMPUTERISED TOMOGRAM ABNORMAL [None]
  - GAIT DISTURBANCE [None]
  - MIGRAINE WITHOUT AURA [None]
  - SLEEP DISORDER [None]
